FAERS Safety Report 7759094-8 (Version None)
Quarter: 2011Q3

REPORT INFORMATION
  Report Type: 
  Country: None (occurrence: None)
  Receive Date: 20110919
  Receipt Date: 20110908
  Transmission Date: 20111222
  Serious: No
  Sender: FDA-Public Use
  Company Number: PHEH2011US03602

PATIENT
  Sex: Female

DRUGS (5)
  1. FISH OIL [Concomitant]
  2. TASIGNA [Suspect]
     Dosage: 300 MG, BID
     Route: 048
  3. LEVOXYL [Concomitant]
  4. CALCIUM CARBONATE [Concomitant]
     Dosage: 500 MG, UNK
  5. SUPER B [Concomitant]

REACTIONS (1)
  - CONTUSION [None]
